FAERS Safety Report 25553437 (Version 1)
Quarter: 2025Q3

REPORT INFORMATION
  Report Type: Spontaneous
  Country: US (occurrence: US)
  Receive Date: 20250715
  Receipt Date: 20250715
  Transmission Date: 20251021
  Serious: No
  Sender: ENDO
  Company Number: US-ENDO USA, INC.-2024-050955

PATIENT
  Sex: Female

DRUGS (2)
  1. ENDOCET [Suspect]
     Active Substance: ACETAMINOPHEN\OXYCODONE HYDROCHLORIDE
     Indication: Pain management
     Dosage: 10 MILLIGRAM, QID
     Route: 065
     Dates: start: 2009
  2. OXYCONTIN [Concomitant]
     Active Substance: OXYCODONE HYDROCHLORIDE
     Indication: Pain management
     Dosage: 10 MILLIGRAM, TID (FOR THE LAST FEW YEARS)
     Route: 065

REACTIONS (3)
  - Pain [Not Recovered/Not Resolved]
  - Product dose omission issue [Not Recovered/Not Resolved]
  - Product availability issue [Not Recovered/Not Resolved]

NARRATIVE: CASE EVENT DATE: 20241101
